FAERS Safety Report 5015458-7 (Version None)
Quarter: 2006Q2

REPORT INFORMATION
  Report Type: 
  Country: None (occurrence: None)
  Receive Date: 20060601
  Receipt Date: 20060518
  Transmission Date: 20061013
  Serious: Yes (Hospitalization, Other)
  Sender: FDA-Public Use
  Company Number: 2006UW09735

PATIENT
  Age: 79 Year
  Sex: Male
  Weight: 74.8 kg

DRUGS (6)
  1. CRESTOR [Suspect]
     Indication: BLOOD CHOLESTEROL INCREASED
     Route: 048
     Dates: start: 20060201
  2. THYROID TAB [Concomitant]
  3. DIGOXIN [Concomitant]
  4. OMEPRAZOLE [Concomitant]
     Route: 048
  5. VITAMINS [Concomitant]
  6. COUMADIN [Concomitant]

REACTIONS (2)
  - COUGH [None]
  - GASTRIC HAEMORRHAGE [None]
